FAERS Safety Report 4577241-6 (Version None)
Quarter: 2005Q1

REPORT INFORMATION
  Report Type: 
  Country: None (occurrence: None)
  Receive Date: 20050209
  Receipt Date: 20050126
  Transmission Date: 20050727
  Serious: Yes (Death)
  Sender: FDA-Public Use
  Company Number: 2004AL000945

PATIENT

DRUGS (5)
  1. HYDRAMINE [Suspect]
     Dosage: PO
     Route: 048
  2. HYDRAMINE [Suspect]
     Dosage: PO
     Route: 048
  3. CYCLOBENZAPRINE [Suspect]
     Dosage: PO
     Route: 048
  4. METHOCARBAMOL [Suspect]
     Dosage: PO
     Route: 048
  5. VALDECOXIB [Suspect]
     Dosage: PO
     Route: 048

REACTIONS (2)
  - COMPLETED SUICIDE [None]
  - MULTIPLE DRUG OVERDOSE [None]
